FAERS Safety Report 7394746-3 (Version None)
Quarter: 2011Q2

REPORT INFORMATION
  Report Type: 
  Country: None (occurrence: None)
  Receive Date: 20110405
  Receipt Date: 20110221
  Transmission Date: 20111010
  Serious: Yes (Death, Other)
  Sender: FDA-Public Use
  Company Number: US-BAXTER-2010BH003654

PATIENT
  Age: 76 Year
  Sex: Female
  Weight: 53 kg

DRUGS (133)
  1. HEPARIN SODIUM INJECTION [Suspect]
     Route: 058
     Dates: start: 20080106, end: 20080123
  2. HEPARIN SODIUM INJECTION [Suspect]
     Route: 042
     Dates: start: 20080109, end: 20080109
  3. HEPARIN SODIUM INJECTION [Suspect]
     Route: 042
     Dates: start: 20080109, end: 20080109
  4. HEPARIN SODIUM INJECTION [Suspect]
     Route: 042
     Dates: start: 20080207, end: 20080207
  5. HEPARIN SODIUM INJECTION [Suspect]
     Route: 042
     Dates: start: 20080109, end: 20080109
  6. HEPARIN SODIUM INJECTION [Suspect]
     Route: 042
     Dates: start: 20080205, end: 20080205
  7. HEPARIN SODIUM INJECTION [Suspect]
     Route: 040
     Dates: start: 20080126, end: 20080126
  8. HEPARIN SODIUM INJECTION [Suspect]
     Route: 058
     Dates: start: 20080207, end: 20080207
  9. HEPARIN SODIUM INJECTION [Suspect]
     Route: 040
     Dates: start: 20080131, end: 20080131
  10. HEPARIN SODIUM INJECTION [Suspect]
     Route: 040
     Dates: start: 20080131, end: 20080131
  11. HEPARIN SODIUM INJECTION [Suspect]
     Route: 040
     Dates: start: 20080210, end: 20080210
  12. ACETAMINOPHEN [Concomitant]
     Indication: PRODUCT USED FOR UNKNOWN INDICATION
     Route: 065
  13. SODIUM NITROPRUSSIDE [Concomitant]
     Indication: PRODUCT USED FOR UNKNOWN INDICATION
     Route: 065
  14. PANTOPRAZOLE [Concomitant]
     Indication: PRODUCT USED FOR UNKNOWN INDICATION
     Route: 065
  15. CHLORHEXIDINE GLUCONATE [Concomitant]
     Indication: PRODUCT USED FOR UNKNOWN INDICATION
     Route: 065
  16. HEPARIN SODIUM INJECTION [Suspect]
     Indication: CORONARY ARTERY BYPASS
     Route: 042
     Dates: start: 20080106, end: 20080123
  17. HEPARIN SODIUM INJECTION [Suspect]
     Route: 058
     Dates: start: 20080106, end: 20080123
  18. HEPARIN SODIUM INJECTION [Suspect]
     Route: 042
     Dates: start: 20080109, end: 20080109
  19. HEPARIN SODIUM INJECTION [Suspect]
     Route: 042
     Dates: start: 20080115, end: 20080124
  20. HEPARIN SODIUM INJECTION [Suspect]
     Route: 042
     Dates: start: 20080109, end: 20080109
  21. HEPARIN SODIUM INJECTION [Suspect]
     Route: 042
     Dates: start: 20080109, end: 20080109
  22. HEPARIN SODIUM INJECTION [Suspect]
     Route: 040
     Dates: start: 20080131, end: 20080131
  23. HEPARIN SODIUM INJECTION [Suspect]
     Route: 040
     Dates: start: 20080131, end: 20080131
  24. HEPARIN SODIUM INJECTION [Suspect]
     Route: 042
     Dates: start: 20080126, end: 20080126
  25. HEPARIN SODIUM INJECTION [Suspect]
     Route: 042
     Dates: start: 20080126, end: 20080126
  26. HEPARIN SODIUM INJECTION [Suspect]
     Route: 040
     Dates: start: 20080210, end: 20080210
  27. HEPARIN SODIUM INJECTION [Suspect]
     Route: 042
     Dates: start: 20080131, end: 20080131
  28. CEFAZOLIN [Concomitant]
     Indication: PRODUCT USED FOR UNKNOWN INDICATION
     Route: 065
  29. LABETALOL [Concomitant]
     Indication: HYPERTENSION
     Route: 042
  30. HEPARIN SODIUM INJECTION [Suspect]
     Route: 058
     Dates: start: 20080106, end: 20080123
  31. HEPARIN SODIUM INJECTION [Suspect]
     Route: 058
     Dates: start: 20080106, end: 20080123
  32. HEPARIN SODIUM INJECTION [Suspect]
     Route: 058
     Dates: start: 20080106, end: 20080123
  33. HEPARIN SODIUM INJECTION [Suspect]
     Route: 065
     Dates: start: 20080201
  34. HEPARIN SODIUM INJECTION [Suspect]
     Route: 042
     Dates: start: 20080115, end: 20080124
  35. HEPARIN SODIUM INJECTION [Suspect]
     Route: 042
     Dates: start: 20080109, end: 20080109
  36. HEPARIN SODIUM INJECTION [Suspect]
     Route: 042
     Dates: start: 20080109, end: 20080109
  37. HEPARIN SODIUM INJECTION [Suspect]
     Route: 042
     Dates: start: 20080129, end: 20080129
  38. HEPARIN SODIUM INJECTION [Suspect]
     Route: 042
     Dates: start: 20080109, end: 20080109
  39. HEPARIN SODIUM INJECTION [Suspect]
     Route: 042
     Dates: start: 20080109, end: 20080109
  40. HEPARIN SODIUM INJECTION [Suspect]
     Route: 042
     Dates: start: 20080202, end: 20080202
  41. HEPARIN SODIUM INJECTION [Suspect]
     Route: 042
     Dates: start: 20080109, end: 20080109
  42. HEPARIN SODIUM INJECTION [Suspect]
     Route: 042
     Dates: start: 20080109, end: 20080109
  43. HEPARIN SODIUM INJECTION [Suspect]
     Route: 040
     Dates: start: 20080131, end: 20080131
  44. HEPARIN SODIUM INJECTION [Suspect]
     Route: 040
     Dates: start: 20080210, end: 20080210
  45. HEPARIN SODIUM INJECTION [Suspect]
     Route: 040
     Dates: start: 20080210, end: 20080210
  46. HEPARIN SODIUM INJECTION [Suspect]
     Route: 042
     Dates: start: 20080131, end: 20080131
  47. MILRINONE [Concomitant]
     Indication: PRODUCT USED FOR UNKNOWN INDICATION
     Route: 065
  48. HEPARIN SODIUM INJECTION [Suspect]
     Indication: DIALYSIS
     Route: 042
     Dates: start: 20080106, end: 20080123
  49. HEPARIN SODIUM INJECTION [Suspect]
     Indication: CARDIOPULMONARY BYPASS
     Route: 042
     Dates: start: 20080106, end: 20080123
  50. HEPARIN SODIUM INJECTION [Suspect]
     Route: 065
     Dates: start: 20080201
  51. HEPARIN SODIUM INJECTION [Suspect]
     Route: 042
     Dates: start: 20080109, end: 20080109
  52. HEPARIN SODIUM INJECTION [Suspect]
     Route: 042
     Dates: start: 20080109, end: 20080109
  53. HEPARIN SODIUM INJECTION [Suspect]
     Route: 042
     Dates: start: 20080115, end: 20080124
  54. HEPARIN SODIUM INJECTION [Suspect]
     Route: 042
     Dates: start: 20080129, end: 20080129
  55. HEPARIN SODIUM INJECTION [Suspect]
     Route: 042
     Dates: start: 20080129, end: 20080129
  56. HEPARIN SODIUM INJECTION [Suspect]
     Route: 042
     Dates: start: 20080129, end: 20080129
  57. HEPARIN SODIUM INJECTION [Suspect]
     Route: 042
     Dates: start: 20080207, end: 20080207
  58. HEPARIN SODIUM INJECTION [Suspect]
     Route: 042
     Dates: start: 20080109, end: 20080109
  59. HEPARIN SODIUM INJECTION [Suspect]
     Route: 042
     Dates: start: 20080202, end: 20080202
  60. HEPARIN SODIUM INJECTION [Suspect]
     Route: 042
     Dates: start: 20080109, end: 20080109
  61. HEPARIN SODIUM INJECTION [Suspect]
     Route: 042
     Dates: start: 20080205, end: 20080205
  62. HEPARIN SODIUM INJECTION [Suspect]
     Route: 040
     Dates: start: 20080126, end: 20080126
  63. HEPARIN SODIUM INJECTION [Suspect]
     Route: 040
     Dates: start: 20080126, end: 20080126
  64. HEPARIN SODIUM INJECTION [Suspect]
     Route: 058
     Dates: start: 20080207, end: 20080207
  65. HEPARIN SODIUM INJECTION [Suspect]
     Route: 058
     Dates: start: 20080207, end: 20080207
  66. HEPARIN SODIUM INJECTION [Suspect]
     Route: 040
     Dates: start: 20080210, end: 20080210
  67. HEPARIN SODIUM INJECTION [Suspect]
     Route: 040
     Dates: start: 20080210, end: 20080210
  68. HEPARIN SODIUM INJECTION [Suspect]
     Route: 042
     Dates: start: 20080131, end: 20080131
  69. BENADRYL ^WARNER-LAMBERT^               /USA/ [Concomitant]
     Indication: PRODUCT USED FOR UNKNOWN INDICATION
     Route: 065
  70. MULTI-VITAMINS [Concomitant]
     Indication: PRODUCT USED FOR UNKNOWN INDICATION
     Route: 065
  71. METOPROLOL TARTRATE [Concomitant]
     Indication: PRODUCT USED FOR UNKNOWN INDICATION
     Route: 065
  72. MUPIROCIN [Concomitant]
     Indication: PRODUCT USED FOR UNKNOWN INDICATION
     Route: 065
  73. ASPIRIN [Concomitant]
     Indication: PRODUCT USED FOR UNKNOWN INDICATION
     Route: 048
  74. HEPARIN SODIUM INJECTION [Suspect]
     Indication: AORTIC VALVE REPLACEMENT
     Route: 042
     Dates: start: 20080106, end: 20080123
  75. HEPARIN SODIUM INJECTION [Suspect]
     Route: 065
     Dates: start: 20080201
  76. HEPARIN SODIUM INJECTION [Suspect]
     Route: 042
     Dates: start: 20080115, end: 20080124
  77. HEPARIN SODIUM INJECTION [Suspect]
     Route: 042
     Dates: start: 20080109, end: 20080109
  78. HEPARIN SODIUM INJECTION [Suspect]
     Route: 042
     Dates: start: 20080109, end: 20080109
  79. HEPARIN SODIUM INJECTION [Suspect]
     Route: 042
     Dates: start: 20080109, end: 20080109
  80. HEPARIN SODIUM INJECTION [Suspect]
     Route: 042
     Dates: start: 20080109, end: 20080109
  81. HEPARIN SODIUM INJECTION [Suspect]
     Route: 042
     Dates: start: 20080205, end: 20080205
  82. HEPARIN SODIUM INJECTION [Suspect]
     Route: 042
     Dates: start: 20080109, end: 20080109
  83. HEPARIN SODIUM INJECTION [Suspect]
     Route: 042
     Dates: start: 20080109, end: 20080109
  84. HEPARIN SODIUM INJECTION [Suspect]
     Route: 040
     Dates: start: 20080210, end: 20080210
  85. HEPARIN SODIUM INJECTION [Suspect]
     Route: 040
     Dates: start: 20080210, end: 20080210
  86. HEPARIN SODIUM INJECTION [Suspect]
     Route: 042
     Dates: start: 20080131, end: 20080131
  87. EPINEPHRINE [Concomitant]
     Indication: PRODUCT USED FOR UNKNOWN INDICATION
     Route: 065
  88. HEPARIN SODIUM INJECTION [Suspect]
     Indication: PROPHYLAXIS
     Route: 042
     Dates: start: 20080106, end: 20080123
  89. HEPARIN SODIUM INJECTION [Suspect]
     Route: 042
     Dates: start: 20080109, end: 20080109
  90. HEPARIN SODIUM INJECTION [Suspect]
     Route: 042
     Dates: start: 20080109, end: 20080109
  91. HEPARIN SODIUM INJECTION [Suspect]
     Route: 042
     Dates: start: 20080109, end: 20080109
  92. HEPARIN SODIUM INJECTION [Suspect]
     Route: 042
     Dates: start: 20080115, end: 20080124
  93. HEPARIN SODIUM INJECTION [Suspect]
     Route: 042
     Dates: start: 20080109, end: 20080109
  94. HEPARIN SODIUM INJECTION [Suspect]
     Route: 042
     Dates: start: 20080207, end: 20080207
  95. HEPARIN SODIUM INJECTION [Suspect]
     Route: 042
     Dates: start: 20080207, end: 20080207
  96. HEPARIN SODIUM INJECTION [Suspect]
     Route: 042
     Dates: start: 20080109, end: 20080109
  97. HEPARIN SODIUM INJECTION [Suspect]
     Route: 042
     Dates: start: 20080202, end: 20080202
  98. HEPARIN SODIUM INJECTION [Suspect]
     Route: 042
     Dates: start: 20080202, end: 20080202
  99. HEPARIN SODIUM INJECTION [Suspect]
     Route: 042
     Dates: start: 20080109, end: 20080109
  100. HEPARIN SODIUM INJECTION [Suspect]
     Route: 058
     Dates: start: 20080207, end: 20080207
  101. HEPARIN SODIUM INJECTION [Suspect]
     Route: 040
     Dates: start: 20080210, end: 20080210
  102. HEPARIN SODIUM INJECTION [Suspect]
     Route: 042
     Dates: start: 20080126, end: 20080126
  103. HEPARIN SODIUM INJECTION [Suspect]
     Route: 042
     Dates: start: 20080126, end: 20080126
  104. VITAMIN B [Concomitant]
     Indication: PRODUCT USED FOR UNKNOWN INDICATION
     Route: 065
  105. CLONIDINE [Concomitant]
     Indication: PRODUCT USED FOR UNKNOWN INDICATION
     Route: 042
  106. DOPAMINE [Concomitant]
     Indication: HYPOTENSION
     Route: 042
  107. HEPARIN SODIUM INJECTION [Suspect]
     Route: 065
     Dates: start: 20080201
  108. HEPARIN SODIUM INJECTION [Suspect]
     Route: 042
     Dates: start: 20080109, end: 20080109
  109. HEPARIN SODIUM INJECTION [Suspect]
     Route: 042
     Dates: start: 20080109, end: 20080109
  110. HEPARIN SODIUM INJECTION [Suspect]
     Route: 042
     Dates: start: 20080129, end: 20080129
  111. HEPARIN SODIUM INJECTION [Suspect]
     Route: 042
     Dates: start: 20080109, end: 20080109
  112. HEPARIN SODIUM INJECTION [Suspect]
     Route: 042
     Dates: start: 20080207, end: 20080207
  113. HEPARIN SODIUM INJECTION [Suspect]
     Route: 042
     Dates: start: 20080205, end: 20080205
  114. HEPARIN SODIUM INJECTION [Suspect]
     Route: 042
     Dates: start: 20080109, end: 20080109
  115. HEPARIN SODIUM INJECTION [Suspect]
     Route: 058
     Dates: start: 20080207, end: 20080207
  116. HEPARIN SODIUM INJECTION [Suspect]
     Route: 040
     Dates: start: 20080210, end: 20080210
  117. HEPARIN SODIUM INJECTION [Suspect]
     Route: 042
     Dates: start: 20080131, end: 20080131
  118. LOVENOX [Suspect]
     Indication: PRODUCT USED FOR UNKNOWN INDICATION
     Route: 058
     Dates: start: 20080101
  119. ZOLOFT [Concomitant]
     Indication: PRODUCT USED FOR UNKNOWN INDICATION
     Route: 065
  120. ALBUTEIN [Concomitant]
     Indication: PRODUCT USED FOR UNKNOWN INDICATION
     Route: 065
  121. NITROGLYCERIN [Concomitant]
     Indication: PRODUCT USED FOR UNKNOWN INDICATION
     Route: 061
  122. SIMVASTATIN [Concomitant]
     Indication: PRODUCT USED FOR UNKNOWN INDICATION
     Route: 065
  123. HEPARIN SODIUM INJECTION [Suspect]
     Route: 065
     Dates: start: 20080201
  124. HEPARIN SODIUM INJECTION [Suspect]
     Route: 042
     Dates: start: 20080109, end: 20080109
  125. HEPARIN SODIUM INJECTION [Suspect]
     Route: 042
     Dates: start: 20080109, end: 20080109
  126. HEPARIN SODIUM INJECTION [Suspect]
     Route: 042
     Dates: start: 20080109, end: 20080109
  127. HEPARIN SODIUM INJECTION [Suspect]
     Route: 042
     Dates: start: 20080202, end: 20080202
  128. HEPARIN SODIUM INJECTION [Suspect]
     Route: 042
     Dates: start: 20080205, end: 20080205
  129. HEPARIN SODIUM INJECTION [Suspect]
     Route: 040
     Dates: start: 20080126, end: 20080126
  130. HEPARIN SODIUM INJECTION [Suspect]
     Route: 040
     Dates: start: 20080126, end: 20080126
  131. HEPARIN SODIUM INJECTION [Suspect]
     Route: 042
     Dates: start: 20080126, end: 20080126
  132. AMINOCAPROIC ACID [Concomitant]
     Indication: PRODUCT USED FOR UNKNOWN INDICATION
     Route: 065
  133. SYNTHROID [Concomitant]
     Indication: PRODUCT USED FOR UNKNOWN INDICATION
     Route: 065

REACTIONS (16)
  - THROMBOCYTOPENIA [None]
  - RENAL FAILURE ACUTE [None]
  - SKIN BURNING SENSATION [None]
  - RESPIRATORY FAILURE [None]
  - ATRIAL FIBRILLATION [None]
  - HAEMOPTYSIS [None]
  - PHARYNGEAL OEDEMA [None]
  - DEHYDRATION [None]
  - HYPOTENSION [None]
  - CEREBROVASCULAR ACCIDENT [None]
  - PLEURAL EFFUSION [None]
  - PRURITUS [None]
  - HEADACHE [None]
  - DIARRHOEA [None]
  - COAGULOPATHY [None]
  - NAUSEA [None]
